FAERS Safety Report 18779541 (Version 1)
Quarter: 2021Q1

REPORT INFORMATION
  Report Type: Spontaneous
  Country: US (occurrence: US)
  Receive Date: 20210125
  Receipt Date: 20210125
  Transmission Date: 20210419
  Serious: Yes (Other)
  Sender: FDA-Public Use
  Company Number: US-GW PHARMA-202101USGW00202

PATIENT

DRUGS (2)
  1. EPIDIOLEX [Suspect]
     Active Substance: CANNABIDIOL
     Dosage: 220 MILLIGRAM, BID
     Route: 048
     Dates: start: 20201224
  2. EPIDIOLEX [Suspect]
     Active Substance: CANNABIDIOL
     Indication: SEIZURE
     Dosage: 430 MILLIGRAM, BID
     Route: 048

REACTIONS (1)
  - Seizure [Unknown]

NARRATIVE: CASE EVENT DATE: 20201226
